FAERS Safety Report 17088167 (Version 1)
Quarter: 2019Q4

REPORT INFORMATION
  Report Type: Spontaneous
  Country: FR (occurrence: FR)
  Receive Date: 20191128
  Receipt Date: 20191128
  Transmission Date: 20200122
  Serious: Yes (Death)
  Sender: FDA-Public Use
  Company Number: FR-UCBSA-2019048477

PATIENT
  Age: 33 Year
  Sex: Male
  Weight: 75 kg

DRUGS (7)
  1. GARDENAL [PHENOBARBITAL SODIUM] [Suspect]
     Active Substance: PHENOBARBITAL SODIUM
     Indication: LENNOX-GASTAUT SYNDROME
     Route: 048
     Dates: end: 20191103
  2. NIVAQUINE [CHLOROQUINE] [Concomitant]
     Active Substance: CHLOROQUINE
     Indication: LUPUS-LIKE SYNDROME
     Dosage: NP
     Route: 048
     Dates: end: 20191103
  3. VIMPAT [Suspect]
     Active Substance: LACOSAMIDE
     Indication: LENNOX-GASTAUT SYNDROME
     Route: 048
     Dates: end: 20191103
  4. VIMPAT [Suspect]
     Active Substance: LACOSAMIDE
     Indication: OFF LABEL USE
  5. CANNABIDIOL [Suspect]
     Active Substance: CANNABIDIOL
     Indication: LENNOX-GASTAUT SYNDROME
     Dosage: 400 MILLIGRAM, ONCE DAILY (QD)
     Route: 048
     Dates: start: 20191001, end: 20191103
  6. FYCOMPA [Suspect]
     Active Substance: PERAMPANEL
     Indication: LENNOX-GASTAUT SYNDROME
     Route: 048
     Dates: end: 20191103
  7. DEPAKINE [VALPROIC ACID] [Suspect]
     Active Substance: VALPROIC ACID
     Indication: LENNOX-GASTAUT SYNDROME
     Route: 048
     Dates: end: 20191103

REACTIONS (2)
  - Sudden death [Fatal]
  - Off label use [Unknown]

NARRATIVE: CASE EVENT DATE: 20191104
